FAERS Safety Report 4566686-6 (Version None)
Quarter: 2005Q1

REPORT INFORMATION
  Report Type: 
  Country: None (occurrence: None)
  Receive Date: 20050126
  Receipt Date: 20050113
  Transmission Date: 20050727
  Serious: Yes (Hospitalization, Other)
  Sender: FDA-Public Use
  Company Number: 2004102407

PATIENT
  Age: 25 Year
  Sex: Female

DRUGS (3)
  1. GEODON [Suspect]
     Indication: SCHIZOPHRENIA
     Dosage: 1 IN 1 D, ORAL
     Route: 048
     Dates: start: 20040923, end: 20041019
  2. CLONAZEPAM [Concomitant]
  3. RISPERDAL [Concomitant]

REACTIONS (4)
  - CONDITION AGGRAVATED [None]
  - GRAND MAL CONVULSION [None]
  - HALLUCINATION, AUDITORY [None]
  - MOVEMENT DISORDER [None]
